FAERS Safety Report 18642687 (Version 1)
Quarter: 2020Q4

REPORT INFORMATION
  Report Type: Spontaneous
  Country: US (occurrence: US)
  Receive Date: 20201218
  Receipt Date: 20201218
  Transmission Date: 20210114
  Serious: No
  Sender: FDA-Public Use
  Company Number: None

PATIENT
  Sex: Male

DRUGS (1)
  1. AMBRISENTAN 10MG [Suspect]
     Active Substance: AMBRISENTAN
     Route: 048

REACTIONS (5)
  - Therapy interrupted [None]
  - Moaning [None]
  - Refusal of treatment by patient [None]
  - Bedridden [None]
  - Grunting [None]
